FAERS Safety Report 18371710 (Version 3)
Quarter: 2021Q2

REPORT INFORMATION
  Report Type: Spontaneous
  Country: US (occurrence: US)
  Receive Date: 20201012
  Receipt Date: 20210514
  Transmission Date: 20210717
  Serious: No
  Sender: FDA-Public Use
  Company Number: US-PFIZER INC-2020391186

PATIENT
  Age: 74 Year
  Sex: Female

DRUGS (2)
  1. IBRANCE [Suspect]
     Active Substance: PALBOCICLIB
     Dosage: 100 MG, CYCLIC, (ONE TABLET DAILY BY MOUTH FOR 3 WEEKS AND THEN OFF FOR 1 WEEK)
     Route: 048
     Dates: start: 201708
  2. IBRANCE [Suspect]
     Active Substance: PALBOCICLIB
     Indication: BREAST CANCER METASTATIC
     Dosage: 100 MG, CYCLIC, (ONE TABLET DAILY BY MOUTH FOR 3 WEEKS AND THEN OFF FOR 1 WEEK)
     Route: 048
     Dates: start: 201708

REACTIONS (4)
  - Musculoskeletal disorder [Unknown]
  - Product packaging difficult to open [Unknown]
  - Nail injury [Unknown]
  - Nail disorder [Unknown]
